FAERS Safety Report 5238450-6 (Version None)
Quarter: 2007Q1

REPORT INFORMATION
  Report Type: 
  Country: None (occurrence: None)
  Receive Date: 20070215
  Receipt Date: 20070207
  Transmission Date: 20070707
  Serious: Yes (Hospitalization)
  Sender: FDA-Public Use
  Company Number: GB-AVENTIS-200710793GDDC

PATIENT
  Age: 29 Year
  Sex: Female
  Weight: 72 kg

DRUGS (3)
  1. DAONIL [Suspect]
     Indication: DIABETES MELLITUS
     Dosage: DOSE QUANTITY: 1
     Route: 048
  2. DAONIL [Suspect]
     Dosage: DOSE QUANTITY: 48
     Route: 048
     Dates: start: 20070124, end: 20070124
  3. DIAZEPAM [Concomitant]
     Dosage: DOSE QUANTITY: 0.5
     Route: 048

REACTIONS (7)
  - HUNGER [None]
  - HYPERHIDROSIS [None]
  - HYPOGLYCAEMIA [None]
  - INTENTIONAL OVERDOSE [None]
  - PYREXIA [None]
  - SUICIDE ATTEMPT [None]
  - TREMOR [None]
